FAERS Safety Report 5521066-1 (Version None)
Quarter: 2007Q4

REPORT INFORMATION
  Report Type: 
  Country: None (occurrence: None)
  Receive Date: 20071115
  Receipt Date: 20071103
  Transmission Date: 20080405
  Serious: Yes (Hospitalization)
  Sender: FDA-Public Use
  Company Number: FABR-12269

PATIENT
  Age: 56 Year
  Sex: Female

DRUGS (2)
  1. FABRAZYME [Suspect]
     Indication: FABRY'S DISEASE
     Dates: start: 20061208
  2. SYNTHROID [Concomitant]

REACTIONS (10)
  - ADVERSE DRUG REACTION [None]
  - ATRIAL FIBRILLATION [None]
  - BLOOD CREATINE PHOSPHOKINASE MB INCREASED [None]
  - BLOOD PRESSURE DECREASED [None]
  - BLOOD THYROID STIMULATING HORMONE INCREASED [None]
  - BRADYCARDIA [None]
  - HEART INJURY [None]
  - HEART RATE IRREGULAR [None]
  - TREATMENT FAILURE [None]
  - TROPONIN INCREASED [None]
